FAERS Safety Report 15048693 (Version 1)
Quarter: 2018Q2

REPORT INFORMATION
  Report Type: Spontaneous
  Country: FR (occurrence: FR)
  Receive Date: 20180622
  Receipt Date: 20180622
  Transmission Date: 20180711
  Serious: Yes (Other)
  Sender: FDA-Public Use
  Company Number: FR-MERCK KGAA-2049813

PATIENT
  Age: 37 Year
  Sex: Female
  Weight: 60 kg

DRUGS (2)
  1. NOVOTHYROX [Suspect]
     Active Substance: LEVOTHYROXINE SODIUM
     Indication: POST PROCEDURAL HYPOTHYROIDISM
     Dates: start: 201704
  2. OMEPRAZOLE. [Concomitant]
     Active Substance: OMEPRAZOLE

REACTIONS (18)
  - Vitamin D decreased [None]
  - Fatigue [Recovered/Resolved]
  - Depression [Recovered/Resolved]
  - Blood cholesterol increased [None]
  - Thyroxine increased [None]
  - Abdominal pain upper [Recovered/Resolved]
  - Low density lipoprotein increased [Recovered/Resolved]
  - Red blood cell count decreased [Recovered/Resolved]
  - Blood thyroid stimulating hormone decreased [Not Recovered/Not Resolved]
  - Asthenia [None]
  - Alopecia [Recovered/Resolved]
  - Haemorrhage [None]
  - Red blood cell sedimentation rate increased [Recovered/Resolved]
  - Blood pressure decreased [None]
  - Insomnia [Recovered/Resolved]
  - Weight decreased [Recovered/Resolved]
  - Muscle spasms [None]
  - Diarrhoea [Recovered/Resolved]

NARRATIVE: CASE EVENT DATE: 2017
